FAERS Safety Report 4343194-9 (Version None)
Quarter: 2004Q1

REPORT INFORMATION
  Report Type: 
  Country: None (occurrence: None)
  Receive Date: 20040325
  Receipt Date: 20031210
  Transmission Date: 20041129
  Serious: No
  Sender: FDA-Public Use
  Company Number: USA031254447

PATIENT
  Age: 85 Year
  Sex: Female
  Weight: 42 kg

DRUGS (4)
  1. FORTEO [Suspect]
     Indication: FRACTURE
     Dates: start: 20031110
  2. LASIX [Concomitant]
  3. POTASSIUM [Concomitant]
  4. SYNTHROID [Concomitant]

REACTIONS (2)
  - FLUID RETENTION [None]
  - WEIGHT DECREASED [None]
